FAERS Safety Report 4976138-7 (Version None)
Quarter: 2006Q2

REPORT INFORMATION
  Report Type: 
  Country: None (occurrence: None)
  Receive Date: 20060411
  Receipt Date: 20060329
  Transmission Date: 20061013
  Serious: Yes (Hospitalization, Other)
  Sender: FDA-Public Use
  Company Number: US-2006-005053

PATIENT
  Sex: Female

DRUGS (4)
  1. BETASERON [Suspect]
     Indication: MULTIPLE SCLEROSIS
     Dosage: SUBCUTANEOUS
     Route: 058
     Dates: start: 19940101, end: 20060301
  2. LOTREL [Concomitant]
  3. DITROPAN      /USA/ (OXYBUTYNIN) [Concomitant]
  4. DDAVP    /USA/ (DESMOPRESSIN ACETATE) [Concomitant]

REACTIONS (2)
  - RENAL FAILURE [None]
  - THROMBOTIC THROMBOCYTOPENIC PURPURA [None]
